FAERS Safety Report 16754871 (Version 1)
Quarter: 2019Q3

REPORT INFORMATION
  Report Type: Spontaneous
  Country: US (occurrence: US)
  Receive Date: 20190829
  Receipt Date: 20190829
  Transmission Date: 20191005
  Serious: No
  Sender: FDA-Public Use
  Company Number: US-AMGEN-USASP2019137159

PATIENT
  Age: 81 Year
  Sex: Female

DRUGS (13)
  1. ASPIRIN 81 [Concomitant]
     Active Substance: ASPIRIN
     Dosage: UNK UNK, QD
  2. LORAZEPAM. [Concomitant]
     Active Substance: LORAZEPAM
     Dosage: 5 MILLIGRAM, AS NECESSARY
  3. REPATHA [Suspect]
     Active Substance: EVOLOCUMAB
     Indication: BLOOD CHOLESTEROL ABNORMAL
     Dosage: 140 MILLIGRAM, Q2WK
     Route: 065
     Dates: end: 201907
  4. TORSEMIDE. [Concomitant]
     Active Substance: TORSEMIDE
     Dosage: 5 MILLIGRAM
  5. AMLODIPINE [Concomitant]
     Active Substance: AMLODIPINE BESYLATE
     Dosage: 5 MILLIGRAM
  6. PANTOPRAZOLE [Concomitant]
     Active Substance: PANTOPRAZOLE
     Dosage: 40 MILLIGRAM
  7. CARVEDILOL. [Concomitant]
     Active Substance: CARVEDILOL
     Indication: BLOOD PRESSURE ABNORMAL
  8. METFORMIN [Concomitant]
     Active Substance: METFORMIN HYDROCHLORIDE
     Dosage: 500 MILLIGRAM ONCE A DAY AND SOMETIMES TWO
  9. DICYCLOMINE [DICYCLOVERINE] [Concomitant]
  10. DOXAZOSINE [DOXAZOSIN] [Concomitant]
  11. MAGNESIUM 400 [Concomitant]
  12. SERTRALINE [Concomitant]
     Active Substance: SERTRALINE HYDROCHLORIDE
     Indication: DEPRESSION
     Dosage: 100 MILLIGRAM
  13. VALSARTAN. [Concomitant]
     Active Substance: VALSARTAN

REACTIONS (1)
  - Nervousness [Recovering/Resolving]

NARRATIVE: CASE EVENT DATE: 2019
